FAERS Safety Report 14092392 (Version 1)
Quarter: 2017Q4

REPORT INFORMATION
  Report Type: Spontaneous
  Country: US (occurrence: None)
  Receive Date: 20171016
  Receipt Date: 20171016
  Transmission Date: 20180321
  Serious: Yes (Death, Hospitalization)
  Sender: FDA-Public Use
  Company Number: None

PATIENT

DRUGS (1)
  1. CEFEPIME [Suspect]
     Active Substance: CEFEPIME HYDROCHLORIDE

REACTIONS (5)
  - Inappropriate schedule of drug administration [None]
  - Incorrect dose administered [None]
  - Encephalopathy [None]
  - Drug prescribing error [None]
  - Drug monitoring procedure incorrectly performed [None]
